FAERS Safety Report 5724901-7 (Version None)
Quarter: 2008Q2

REPORT INFORMATION
  Report Type: 
  Country: None (occurrence: None)
  Receive Date: 20080501
  Receipt Date: 20080422
  Transmission Date: 20081010
  Serious: Yes (Other)
  Sender: FDA-Public Use
  Company Number: MX-AVENTIS-200813549GDDC

PATIENT
  Sex: Male
  Weight: 1.4 kg

DRUGS (2)
  1. LANTUS [Suspect]
     Route: 015
     Dates: start: 20060501, end: 20070824
  2. LANTUS [Suspect]
     Route: 015
     Dates: start: 20070825, end: 20071004

REACTIONS (2)
  - DRUG EXPOSURE DURING PREGNANCY [None]
  - SMALL FOR DATES BABY [None]
